FAERS Safety Report 13416728 (Version 1)
Quarter: 2017Q2

REPORT INFORMATION
  Report Type: Report from Study
  Country: GB (occurrence: GB)
  Receive Date: 20170407
  Receipt Date: 20170407
  Transmission Date: 20170830
  Serious: Yes (Other)
  Sender: FDA-Public Use
  Company Number: GB-BAYER-2017-061732

PATIENT
  Weight: 1.26 kg

DRUGS (1)
  1. CIPROFLOXACIN. [Suspect]
     Active Substance: CIPROFLOXACIN
     Dosage: UNK
     Route: 064

REACTIONS (8)
  - Neonatal respiratory distress syndrome [None]
  - Hypoglycaemia neonatal [None]
  - Sepsis neonatal [None]
  - Rash neonatal [None]
  - Low birth weight baby [None]
  - Apgar score low [None]
  - Premature baby [None]
  - Foetal exposure timing unspecified [None]
